FAERS Safety Report 5465685-X (Version None)
Quarter: 2007Q3

REPORT INFORMATION
  Report Type: 
  Country: None (occurrence: None)
  Receive Date: 20070924
  Receipt Date: 20070912
  Transmission Date: 20080115
  Serious: Yes (Hospitalization)
  Sender: FDA-Public Use
  Company Number: US-ROCHE-512691

PATIENT
  Age: 76 Year
  Sex: Male
  Weight: 100.7 kg

DRUGS (1)
  1. BONIVA [Suspect]
     Indication: OSTEOPOROSIS
     Dosage: FORM REPORTED AS PREFILLED SYRINGE. STRENGTH WAS REPORTED AS 3MG/ML.
     Route: 042
     Dates: start: 20070815, end: 20070815

REACTIONS (4)
  - ERYTHEMA [None]
  - EXTRAVASATION [None]
  - INJECTION SITE INFECTION [None]
  - SWELLING [None]
